FAERS Safety Report 18871270 (Version 1)
Quarter: 2021Q1

REPORT INFORMATION
  Report Type: Spontaneous
  Country: US (occurrence: US)
  Receive Date: 20210210
  Receipt Date: 20210210
  Transmission Date: 20210420
  Serious: No
  Sender: FDA-Public Use
  Company Number: US-SA-2021SA041397

PATIENT
  Sex: Female

DRUGS (1)
  1. DUPIXENT [Suspect]
     Active Substance: DUPILUMAB
     Indication: DERMATITIS ATOPIC
     Dosage: 300 MG, QOW
     Route: 058
     Dates: start: 201903

REACTIONS (6)
  - Hyperacusis [Unknown]
  - Noninfective sialoadenitis [Unknown]
  - Aptyalism [Unknown]
  - Dysphagia [Unknown]
  - Dyspnoea [Unknown]
  - Dysgeusia [Unknown]
